FAERS Safety Report 8473399-7 (Version None)
Quarter: 2012Q2

REPORT INFORMATION
  Report Type: 
  Country: None (occurrence: None)
  Receive Date: 20120628
  Receipt Date: 20120619
  Transmission Date: 20120825
  Serious: No
  Sender: FDA-Public Use
  Company Number: US-BIOGENIDEC-2012BI021945

PATIENT
  Age: 35 Year
  Sex: Female

DRUGS (2)
  1. AVONEX [Suspect]
     Indication: MULTIPLE SCLEROSIS
     Route: 030
     Dates: start: 20040427, end: 20040627
  2. AVONEX [Suspect]
     Route: 030
     Dates: start: 20110305

REACTIONS (3)
  - TREMOR [None]
  - INFLUENZA LIKE ILLNESS [None]
  - FATIGUE [None]
